FAERS Safety Report 10983648 (Version 1)
Quarter: 2015Q2

REPORT INFORMATION
  Report Type: Report from Study
  Country: DE (occurrence: DE)
  Receive Date: 20150403
  Receipt Date: 20150403
  Transmission Date: 20150821
  Serious: Yes (Death, Hospitalization, Other)
  Sender: FDA-Public Use
  Company Number: DE-ACTELION-A-NJ2015-115740

PATIENT
  Age: 74 Year
  Sex: Female

DRUGS (10)
  1. VENTAVIS [Suspect]
     Active Substance: ILOPROST
     Indication: PULMONARY ARTERIAL HYPERTENSION
     Dosage: 6 MCG, 6ID
     Route: 055
     Dates: start: 20110617
  2. NEBIVOLOL [Concomitant]
     Active Substance: NEBIVOLOL
  3. L-THYROXIN [Concomitant]
     Active Substance: LEVOTHYROXINE SODIUM
  4. SPIRONOLACTONE. [Concomitant]
     Active Substance: SPIRONOLACTONE
  5. PANTOPRAZOLE [Concomitant]
     Active Substance: PANTOPRAZOLE SODIUM
  6. ALFACALCIDOL [Concomitant]
     Active Substance: ALFACALCIDOL
  7. DARBEPOETIN ALFA [Concomitant]
     Active Substance: DARBEPOETIN ALFA
  8. TADALAFIL [Concomitant]
     Active Substance: TADALAFIL
  9. APIDRA [Concomitant]
     Active Substance: INSULIN GLULISINE
     Dosage: UNK
  10. DIGITOXIN [Concomitant]
     Active Substance: DIGITOXIN

REACTIONS (12)
  - Cardiorenal syndrome [Unknown]
  - Bradycardia [Unknown]
  - Hypercalcaemia [Unknown]
  - Atrial fibrillation [Unknown]
  - Anaemia [Unknown]
  - Tachycardia [Unknown]
  - Haemorrhagic anaemia [Unknown]
  - Peritoneal haemorrhage [Unknown]
  - Pneumonia [Unknown]
  - Septic shock [Fatal]
  - Atrial flutter [Unknown]
  - Fluid retention [Unknown]

NARRATIVE: CASE EVENT DATE: 20150313
